FAERS Safety Report 15098587 (Version 1)
Quarter: 2018Q3

REPORT INFORMATION
  Report Type: Spontaneous
  Country: US (occurrence: US)
  Receive Date: 20180702
  Receipt Date: 20180702
  Transmission Date: 20181010
  Serious: No
  Sender: FDA-Public Use
  Company Number: US-ASTRAZENECA-2018SE73809

PATIENT
  Sex: Male

DRUGS (1)
  1. PULMICORT FLEXHALER [Suspect]
     Active Substance: BUDESONIDE
     Route: 055

REACTIONS (6)
  - Device malfunction [Unknown]
  - Malaise [Unknown]
  - Lung infection [Unknown]
  - Drug ineffective [Unknown]
  - Throat irritation [Unknown]
  - Cough [Unknown]
